FAERS Safety Report 22612829 (Version 1)
Quarter: 2023Q2

REPORT INFORMATION
  Report Type: Spontaneous
  Country: KP (occurrence: KP)
  Receive Date: 20230617
  Receipt Date: 20230617
  Transmission Date: 20230721
  Serious: Yes (Other)
  Sender: FDA-Public Use
  Company Number: KP-SUN PHARMACEUTICAL INDUSTRIES LTD-2023R1-395089

PATIENT
  Age: 13 Month
  Sex: Male

DRUGS (2)
  1. METHOTREXATE [Suspect]
     Active Substance: METHOTREXATE
     Indication: Inflammation
     Dosage: 10 MILLIGRAM/SQ. METER, WEEKLY
     Route: 065
  2. PREDNISOLONE [Suspect]
     Active Substance: PREDNISOLONE
     Indication: Inflammation
     Dosage: 1 MILLIGRAM/KILOGRAM, DAILY
     Route: 065

REACTIONS (1)
  - Arthritis [Recovered/Resolved]
